FAERS Safety Report 5404206-4 (Version None)
Quarter: 2007Q3

REPORT INFORMATION
  Report Type: 
  Country: None (occurrence: None)
  Receive Date: 20070802
  Receipt Date: 20070720
  Transmission Date: 20080115
  Serious: Yes (Other)
  Sender: FDA-Public Use
  Company Number: FR-ROCHE-508419

PATIENT
  Age: 74 Year
  Sex: Male

DRUGS (2)
  1. ROCEPHIN [Suspect]
     Dosage: INDICATION: SEPTICEMIA OF A PULMONARY ORIGIN.
     Route: 065
     Dates: start: 20070701
  2. ROCEPHIN [Suspect]
     Route: 065
     Dates: start: 20070712, end: 20070714

REACTIONS (2)
  - HAEMOLYSIS [None]
  - HYPERSENSITIVITY [None]
